FAERS Safety Report 10545059 (Version 1)
Quarter: 2014Q4

REPORT INFORMATION
  Report Type: Report from Study
  Country: US (occurrence: US)
  Receive Date: 20141027
  Receipt Date: 20141027
  Transmission Date: 20150529
  Serious: Yes (Death)
  Sender: FDA-Public Use
  Company Number: US-EXELIXIS-CABO-14004874

PATIENT
  Age: 63 Year
  Sex: Male

DRUGS (1)
  1. CABOZANTINIB [Suspect]
     Active Substance: CABOZANTINIB
     Indication: THYROID CANCER
     Dosage: 140 MG, QD
     Route: 048
     Dates: start: 20140915

REACTIONS (3)
  - Death [Fatal]
  - Malignant neoplasm progression [None]
  - Thyroid cancer [None]

NARRATIVE: CASE EVENT DATE: 20141019
